FAERS Safety Report 8913795 (Version 2)
Quarter: 2012Q4

REPORT INFORMATION
  Report Type: 
  Country: GB (occurrence: GB)
  Receive Date: 20121119
  Receipt Date: 20121129
  Transmission Date: 20130627
  Serious: Yes (Other)
  Sender: FDA-Public Use
  Company Number: GB-ACCORD-015225

PATIENT
  Age: 62 Year
  Sex: Male
  Weight: 96 kg

DRUGS (12)
  1. OMEPRAZOLE [Concomitant]
     Indication: DRUG USE FOR UNKNOWN INDICATION
  2. FINASTERIDE [Suspect]
     Indication: BLADDER DISORDER
     Dates: start: 20121003, end: 20121014
  3. METFORMIN HYDROCHLORIDE [Concomitant]
     Indication: DRUG USE FOR UNKNOWN INDICATION
  4. EZETIMIBE [Concomitant]
     Indication: DRUG USE FOR UNKNOWN INDICATION
  5. TAMSULOSIN HYDROCHLORIDE [Suspect]
     Indication: BLADDER DISORDER
     Dates: start: 20121003, end: 20121014
  6. LACTULOSE [Concomitant]
     Indication: DRUG USE FOR UNKNOWN INDICATION
  7. SYMBICORT [Concomitant]
     Indication: DRUG USE FOR UNKNOWN INDICATION
     Route: 055
  8. ZOMORPH [Concomitant]
     Indication: DRUG USE FOR UNKNOWN INDICATION
  9. MONTELUKAST SODIUM [Concomitant]
     Indication: DRUG USE FOR UNKNOWN INDICATION
  10. SENNA [Concomitant]
     Indication: DRUG USE FOR UNKNOWN INDICATION
     Dosage: the morning
  11. SITAGLIPTIN [Concomitant]
     Indication: DRUG USE FOR UNKNOWN INDICATION
  12. TERBUTALINE [Concomitant]
     Indication: DRUG USE FOR UNKNOWN INDICATION
     Route: 055

REACTIONS (9)
  - Chest pain [Recovering/Resolving]
  - Headache [Recovering/Resolving]
  - Abdominal pain [Recovering/Resolving]
  - Palpitations [Recovering/Resolving]
  - Testicular pain [Recovering/Resolving]
  - Pain [Recovering/Resolving]
  - Dizziness [Recovering/Resolving]
  - Diarrhoea [Recovering/Resolving]
  - Malaise [Recovering/Resolving]
